FAERS Safety Report 26169599 (Version 1)
Quarter: 2025Q4

REPORT INFORMATION
  Report Type: Spontaneous
  Country: CN (occurrence: CN)
  Receive Date: 20251217
  Receipt Date: 20251217
  Transmission Date: 20260117
  Serious: Yes (Other)
  Sender: ACCORD
  Company Number: CN-MLMSERVICE-20251128-PI730958-00162-1

PATIENT
  Age: 49 Year
  Sex: Male

DRUGS (28)
  1. FUROSEMIDE [Suspect]
     Active Substance: FUROSEMIDE
     Indication: Cardiac failure
     Dates: start: 2023
  2. HYDROCHLOROTHIAZIDE [Suspect]
     Active Substance: HYDROCHLOROTHIAZIDE
     Indication: Cardiac failure
     Dosage: LOW-DOSE
     Route: 048
     Dates: start: 2023
  3. SPIRONOLACTONE [Suspect]
     Active Substance: SPIRONOLACTONE
     Indication: Cardiac failure
     Route: 048
     Dates: start: 2023
  4. CATEQUENTINIB [Concomitant]
     Active Substance: CATEQUENTINIB
     Indication: Non-small cell lung cancer stage IIIA
     Dates: start: 202309
  5. CADONILIMAB [Concomitant]
     Active Substance: CADONILIMAB
     Indication: Non-small cell lung cancer stage IIIA
     Dates: start: 202309
  6. COENZYME Q10 [Concomitant]
     Active Substance: DIETARY SUPPLEMENT\UBIDECARENONE
     Indication: Cardiac failure
     Route: 048
     Dates: start: 2023
  7. GEMCITABINE [Concomitant]
     Active Substance: GEMCITABINE
     Indication: Non-small cell lung cancer stage IIIA
     Dates: start: 202309
  8. HYDROCORTISONE [Concomitant]
     Active Substance: HYDROCORTISONE
     Indication: Hypopituitarism
     Dosage: 20 MG AT 8:00 AM AND 10 MG AT 2:00 PM
     Dates: start: 201910
  9. METHYLPREDNISOLONE [Concomitant]
     Active Substance: METHYLPREDNISOLONE
     Indication: Immune-mediated myocarditis
     Dates: start: 202311, end: 2023
  10. OXYGEN [Concomitant]
     Active Substance: OXYGEN
     Indication: Dyspnoea
     Dosage: ADMINISTERED VIA NASAL CANNULA
     Route: 045
  11. METHYLPREDNISOLONE [Concomitant]
     Active Substance: METHYLPREDNISOLONE
     Indication: Pneumonia
     Dates: start: 202311, end: 2023
  12. METHYLPREDNISOLONE [Concomitant]
     Active Substance: METHYLPREDNISOLONE
     Indication: Immune-mediated myocarditis
     Dosage: DOSE WAS INCREASED
     Dates: start: 2023, end: 2023
  13. METHYLPREDNISOLONE [Concomitant]
     Active Substance: METHYLPREDNISOLONE
     Indication: Immune-mediated myocarditis
     Dosage: DOSE INCREASED
     Dates: start: 2023, end: 2023
  14. METHYLPREDNISOLONE [Concomitant]
     Active Substance: METHYLPREDNISOLONE
     Indication: Pneumonia
     Dosage: DOSE WAS INCREASED
     Dates: start: 2023, end: 2023
  15. METHYLPREDNISOLONE [Concomitant]
     Active Substance: METHYLPREDNISOLONE
     Indication: Pneumonia
     Dosage: DOSE INCREASED
     Dates: start: 2023, end: 2023
  16. HYDROCORTISONE [Concomitant]
     Active Substance: HYDROCORTISONE
     Indication: Hypopituitarism
     Dates: start: 201910
  17. CADONILIMAB [Concomitant]
     Active Substance: CADONILIMAB
     Indication: Metastases to heart
     Dates: start: 202309
  18. CADONILIMAB [Concomitant]
     Active Substance: CADONILIMAB
     Indication: Metastases to muscle
     Dates: start: 202309
  19. CADONILIMAB [Concomitant]
     Active Substance: CADONILIMAB
     Indication: Squamous cell carcinoma of lung
     Dates: start: 202309
  20. CADONILIMAB [Concomitant]
     Active Substance: CADONILIMAB
     Indication: Metastases to lymph nodes
     Dates: start: 202309
  21. GEMCITABINE [Concomitant]
     Active Substance: GEMCITABINE
     Indication: Metastases to heart
     Dates: start: 202309
  22. GEMCITABINE [Concomitant]
     Active Substance: GEMCITABINE
     Indication: Metastases to muscle
     Dates: start: 202309
  23. GEMCITABINE [Concomitant]
     Active Substance: GEMCITABINE
     Indication: Squamous cell carcinoma of lung
     Dates: start: 202309
  24. GEMCITABINE [Concomitant]
     Active Substance: GEMCITABINE
     Indication: Metastases to lymph nodes
     Dates: start: 202309
  25. CATEQUENTINIB [Concomitant]
     Active Substance: CATEQUENTINIB
     Indication: Metastases to heart
     Dates: start: 202309
  26. CATEQUENTINIB [Concomitant]
     Active Substance: CATEQUENTINIB
     Indication: Metastases to muscle
     Dates: start: 202309
  27. CATEQUENTINIB [Concomitant]
     Active Substance: CATEQUENTINIB
     Indication: Squamous cell carcinoma of lung
     Dates: start: 202309
  28. CATEQUENTINIB [Concomitant]
     Active Substance: CATEQUENTINIB
     Indication: Metastases to lymph nodes
     Dates: start: 202309

REACTIONS (1)
  - Hypoalbuminaemia [Recovering/Resolving]

NARRATIVE: CASE EVENT DATE: 20230101
